FAERS Safety Report 7889268-7 (Version None)
Quarter: 2011Q4

REPORT INFORMATION
  Report Type: 
  Country: None (occurrence: None)
  Receive Date: 20111103
  Receipt Date: 20111026
  Transmission Date: 20120403
  Serious: Yes (Death, Other)
  Sender: FDA-Public Use
  Company Number: CH-ACTELION-A-CH2011-56264

PATIENT
  Age: 29 Month
  Sex: Female

DRUGS (3)
  1. TRACLEER [Suspect]
     Indication: PULMONARY ARTERIAL HYPERTENSION
     Dosage: 16 MG, QD
     Route: 048
  2. OXYGEN [Concomitant]
  3. DIURETICS [Concomitant]

REACTIONS (3)
  - CYANOSIS [None]
  - PULMONARY HYPERTENSIVE CRISIS [None]
  - APNOEA [None]
